FAERS Safety Report 22304980 (Version 4)
Quarter: 2023Q2

REPORT INFORMATION
  Report Type: Spontaneous
  Country: US (occurrence: US)
  Receive Date: 20230510
  Receipt Date: 20230607
  Transmission Date: 20230721
  Serious: No
  Sender: FDA-Public Use
  Company Number: US-PFIZER INC-202300178448

PATIENT
  Age: 60 Year
  Sex: Male
  Weight: 67.59 kg

DRUGS (3)
  1. NURTEC ODT [Suspect]
     Active Substance: RIMEGEPANT SULFATE
     Indication: Migraine
     Dosage: UNK, AS NEEDED (TAKES HALF OF A 75MG ORAL DISINTEGRATION TABLET OR AS NEARLY AS CAN APPROXIMATE)
     Route: 048
     Dates: start: 202111
  2. SILDENAFIL CITRATE [Concomitant]
     Active Substance: SILDENAFIL CITRATE
     Dosage: 25 MG, AS NEEDED (25 FROM THE CAMBER)
     Route: 048
  3. SILDENAFIL CITRATE [Concomitant]
     Active Substance: SILDENAFIL CITRATE
     Dosage: 50 MG, AS NEEDED (50^S ARE FROM TORRENT PHARMACEUTICALS)
     Route: 048

REACTIONS (6)
  - Nasopharyngitis [Recovered/Resolved]
  - Pyrexia [Recovered/Resolved]
  - Suspected counterfeit product [Unknown]
  - Drug ineffective [Unknown]
  - Wrong technique in product usage process [Unknown]
  - Off label use [Unknown]

NARRATIVE: CASE EVENT DATE: 20230501
